FAERS Safety Report 6311392-0 (Version None)
Quarter: 2009Q3

REPORT INFORMATION
  Report Type: 
  Country: None (occurrence: None)
  Receive Date: 20090817
  Receipt Date: 20090805
  Transmission Date: 20100115
  Serious: Yes (Hospitalization)
  Sender: FDA-Public Use
  Company Number: SE-PFIZER INC-2009250378

PATIENT
  Age: 69 Year

DRUGS (14)
  1. VFEND [Suspect]
     Indication: ASPERGILLOSIS
     Dosage: UNK MG/24H, UNK
     Route: 048
     Dates: start: 20090414, end: 20090510
  2. EVEROLIMUS [Interacting]
     Indication: MUSCULAR WEAKNESS
     Dosage: UNK
     Dates: start: 20090225, end: 20090507
  3. FOSAMAX [Concomitant]
     Dosage: UNK
  4. SANDIMMUNE [Concomitant]
     Dosage: UNK
  5. PAMOL [Concomitant]
     Dosage: UNK
  6. OMEPRAZOL [Concomitant]
     Dosage: UNK
  7. SIMVASTATIN [Concomitant]
     Dosage: UNK
  8. BACTRIM [Concomitant]
     Dosage: UNK
  9. PREDNISOLONE [Concomitant]
     Dosage: UNK
  10. EMCONCOR [Concomitant]
     Dosage: UNK
  11. CELLCEPT [Concomitant]
     Dosage: UNK
  12. CALCICHEW-D3 [Concomitant]
     Dosage: UNK
  13. TRADOLAN [Concomitant]
     Dosage: UNK
  14. FURIX [Concomitant]
     Dosage: UNK

REACTIONS (3)
  - DRUG THERAPEUTIC INCOMPATIBILITY [None]
  - RENAL FAILURE [None]
  - TRANSAMINASES INCREASED [None]
